FAERS Safety Report 19194611 (Version 2)
Quarter: 2021Q2

REPORT INFORMATION
  Report Type: Spontaneous
  Country: US (occurrence: US)
  Receive Date: 20210429
  Receipt Date: 20210611
  Transmission Date: 20210717
  Serious: Yes (Hospitalization, Other)
  Sender: FDA-Public Use
  Company Number: US-ASTRAZENECA-2021A324446

PATIENT
  Sex: Female
  Weight: 63.5 kg

DRUGS (11)
  1. CORTISONE [Suspect]
     Active Substance: CORTISONE
     Route: 065
  2. PROTONIX [Concomitant]
     Active Substance: PANTOPRAZOLE SODIUM
     Indication: GASTROINTESTINAL DISORDER
  3. BREZTRI AEROSPHERE [Suspect]
     Active Substance: BUDESONIDE\FORMOTEROL\GLYCOPYRRONIUM
     Indication: CHRONIC OBSTRUCTIVE PULMONARY DISEASE
     Dosage: ONE INHALATION TWO TIMES A DAY
     Route: 055
  4. SYNTHROID [Suspect]
     Active Substance: LEVOTHYROXINE SODIUM
     Dosage: 0.88
     Route: 065
  5. FUROSEMIDE. [Concomitant]
     Active Substance: FUROSEMIDE
     Dosage: 40 DAILY
  6. ZOLOFT [Concomitant]
     Active Substance: SERTRALINE HYDROCHLORIDE
  7. COUMADIN [Concomitant]
     Active Substance: WARFARIN SODIUM
  8. POTASSIUM [Concomitant]
     Active Substance: POTASSIUM
     Dosage: 10MEQ/ML DAILY
  9. XANAX [Concomitant]
     Active Substance: ALPRAZOLAM
     Dosage: 0.5MG UNKNOWN
  10. LOSARTAN. [Concomitant]
     Active Substance: LOSARTAN
  11. SYMBICORT [Suspect]
     Active Substance: BUDESONIDE\FORMOTEROL FUMARATE DIHYDRATE
     Indication: CHRONIC OBSTRUCTIVE PULMONARY DISEASE
     Dosage: 2 INHALATIONS TWO TIMES A DAY
     Route: 055

REACTIONS (7)
  - Weight increased [Unknown]
  - Heart rate increased [Unknown]
  - Intentional product misuse [Not Recovered/Not Resolved]
  - Discoloured vomit [Recovered/Resolved]
  - Gastric haemorrhage [Recovered/Resolved]
  - Rheumatoid arthritis [Unknown]
  - Upper respiratory tract infection [Recovered/Resolved]
